FAERS Safety Report 23113465 (Version 2)
Quarter: 2023Q4

REPORT INFORMATION
  Report Type: Report from Study
  Country: US (occurrence: US)
  Receive Date: 20231027
  Receipt Date: 20231027
  Transmission Date: 20240110
  Serious: Yes (Other)
  Sender: FDA-Public Use
  Company Number: US-ABBVIE-5463849

PATIENT
  Sex: Female
  Weight: 47.627 kg

DRUGS (1)
  1. CREON [Suspect]
     Active Substance: PANCRELIPASE AMYLASE\PANCRELIPASE LIPASE\PANCRELIPASE PROTEASE
     Indication: Product used for unknown indication
     Dosage: FORM STRENGTH: 36000 UNIT ?FREQUENCY TEXT: TWO CAPSULES WITH EVERY MEAL
     Route: 048
     Dates: end: 20231019

REACTIONS (4)
  - Pancreatitis [Unknown]
  - Sitophobia [Unknown]
  - Unevaluable event [Unknown]
  - Stool analysis abnormal [Unknown]
